FAERS Safety Report 4995638-7 (Version None)
Quarter: 2006Q2

REPORT INFORMATION
  Report Type: 
  Country: None (occurrence: None)
  Receive Date: 20060504
  Receipt Date: 20060421
  Transmission Date: 20061013
  Serious: Yes (Life-Threatening, Hospitalization, Disabling, Other)
  Sender: FDA-Public Use
  Company Number: 2006042385

PATIENT
  Age: 21 Year
  Sex: Female

DRUGS (7)
  1. CAMPTOSAR [Suspect]
     Indication: EPENDYMOMA
     Dosage: 50 MG/M2, CYCLIC INTERVAL: 5 DAYS/WEEK), INTRAVENOUS
     Route: 042
     Dates: start: 20060101, end: 20060101
  2. ERLOTINIB (ERLOTINIB) [Suspect]
     Indication: BRAIN NEOPLASM
  3. KEPPRA [Concomitant]
  4. BACTRIM [Concomitant]
  5. DIFLUCAN [Concomitant]
  6. ERLOTINIB [Concomitant]
  7. DECADRON SRC [Concomitant]

REACTIONS (17)
  - ABASIA [None]
  - ANXIETY [None]
  - ASTHENIA [None]
  - CONVULSION [None]
  - DEVICE RELATED INFECTION [None]
  - DIARRHOEA HAEMORRHAGIC [None]
  - DRUG INTERACTION [None]
  - EATING DISORDER [None]
  - FALL [None]
  - INTRACRANIAL PRESSURE INCREASED [None]
  - MUSCLE SPASMS [None]
  - NEUROLOGICAL EXAMINATION ABNORMAL [None]
  - NUCHAL RIGIDITY [None]
  - ORAL INTAKE REDUCED [None]
  - PAIN [None]
  - TREMOR [None]
  - VOMITING [None]
